FAERS Safety Report 10664957 (Version 4)
Quarter: 2015Q1

REPORT INFORMATION
  Report Type: Report from Study
  Country: JP (occurrence: JP)
  Receive Date: 20141219
  Receipt Date: 20150220
  Transmission Date: 20150720
  Serious: Yes (Death, Hospitalization)
  Sender: FDA-Public Use
  Company Number: JP-BAYER-2014-150412

PATIENT
  Age: 70 Year
  Sex: Female
  Weight: 65 kg

DRUGS (5)
  1. GLIMEPIRIDE. [Suspect]
     Active Substance: GLIMEPIRIDE
     Dosage: DAILY DOSE 2 MG
     Route: 048
     Dates: end: 20141005
  2. REGORAFENIB [Suspect]
     Active Substance: REGORAFENIB
     Indication: RECTAL CANCER
     Dosage: 160 MG, QD  (ON FOR 3 WEEKS AND OFF FOR 1 WEEK)
     Route: 048
     Dates: start: 20140422, end: 20140429
  3. REGORAFENIB [Suspect]
     Active Substance: REGORAFENIB
     Indication: RECTAL CANCER
     Dosage: 120 MG, QD  (ON FOR 3 WEEKS AND OFF FOR 1 WEEK)
     Route: 048
     Dates: start: 20140430, end: 20140513
  4. VILDAGLIPTIN [Suspect]
     Active Substance: VILDAGLIPTIN
     Dosage: DAILY DOSE 100 MG
     Route: 048
  5. REGORAFENIB [Suspect]
     Active Substance: REGORAFENIB
     Indication: RECTAL CANCER
     Dosage: 120 MG, QD  (ON FOR 3 WEEKS AND OFF FOR 1 WEEK)
     Route: 048
     Dates: start: 20140612, end: 20141204

REACTIONS (7)
  - Rectal cancer metastatic [Fatal]
  - Dehydration [Recovering/Resolving]
  - Hypoglycaemia [Recovering/Resolving]
  - Decreased appetite [Not Recovered/Not Resolved]
  - Acute kidney injury [Recovered/Resolved]
  - Disseminated intravascular coagulation [Recovering/Resolving]
  - Sepsis [Not Recovered/Not Resolved]

NARRATIVE: CASE EVENT DATE: 20141005
